FAERS Safety Report 21902752 (Version 1)
Quarter: 2023Q1

REPORT INFORMATION
  Report Type: Spontaneous
  Country: ES (occurrence: ES)
  Receive Date: 20230124
  Receipt Date: 20230124
  Transmission Date: 20230417
  Serious: Yes (Other)
  Sender: FDA-Public Use
  Company Number: None

PATIENT
  Sex: Female

DRUGS (1)
  1. EYLEA [Suspect]
     Active Substance: AFLIBERCEPT
     Indication: Product used for unknown indication
     Dosage: UNK; SOLUTION FOR INJECTION
     Route: 031
     Dates: start: 20220117, end: 20220117

REACTIONS (3)
  - Blindness [Unknown]
  - Product use complaint [Unknown]
  - Eye pain [Unknown]

NARRATIVE: CASE EVENT DATE: 20220117
